FAERS Safety Report 25654982 (Version 3)
Quarter: 2025Q4

REPORT INFORMATION
  Report Type: Report from Study
  Country: CA (occurrence: CA)
  Receive Date: 20250807
  Receipt Date: 20251217
  Transmission Date: 20260118
  Serious: Yes (Other)
  Sender: ABBVIE
  Company Number: CA-ABBVIE-6404820

PATIENT
  Age: 51 Year
  Sex: Male

DRUGS (3)
  1. RINVOQ [Suspect]
     Active Substance: UPADACITINIB
     Indication: Ankylosing spondylitis
     Dosage: 30 MG?LAST DOSE DATE: 10 DEC 2025
     Route: 048
     Dates: start: 202510
  2. RINVOQ [Suspect]
     Active Substance: UPADACITINIB
     Indication: Ankylosing spondylitis
     Dosage: 30 MG
     Route: 048
     Dates: end: 202507
  3. SIMPONI [Concomitant]
     Active Substance: GOLIMUMAB
     Indication: Product used for unknown indication
     Dosage: LAST DOSE DATE: 2025

REACTIONS (8)
  - Intestinal resection [Recovering/Resolving]
  - Uveitis [Unknown]
  - Herpes zoster [Recovered/Resolved]
  - Hyperkeratosis [Unknown]
  - Anal fistula [Unknown]
  - Anal fissure [Unknown]
  - Fistula discharge [Unknown]
  - Pain [Unknown]

NARRATIVE: CASE EVENT DATE: 20240101
